FAERS Safety Report 7580583-3 (Version None)
Quarter: 2011Q2

REPORT INFORMATION
  Report Type: 
  Country: None (occurrence: None)
  Receive Date: 20110629
  Receipt Date: 20110622
  Transmission Date: 20111010
  Serious: Yes (Other)
  Sender: FDA-Public Use
  Company Number: A0933512A

PATIENT
  Age: 40 Year
  Sex: Male

DRUGS (2)
  1. NONE [Concomitant]
  2. BUPROPION HYDROCHLORIDE [Suspect]
     Dosage: 37.5MG SINGLE DOSE
     Route: 048
     Dates: start: 20090926, end: 20090926

REACTIONS (19)
  - HOSTILITY [None]
  - OFF LABEL USE [None]
  - MUSCLE SPASMS [None]
  - LARYNGOSPASM [None]
  - OCCIPITAL NEURALGIA [None]
  - MENTAL DISORDER [None]
  - TORTICOLLIS [None]
  - MIGRAINE [None]
  - HEARING IMPAIRED [None]
  - LOSS OF CONSCIOUSNESS [None]
  - ANGER [None]
  - CONVULSION [None]
  - SPEECH DISORDER [None]
  - PHOTOPSIA [None]
  - GASTROOESOPHAGEAL REFLUX DISEASE [None]
  - VOMITING [None]
  - HEAD INJURY [None]
  - UNRESPONSIVE TO STIMULI [None]
  - ABDOMINAL PAIN UPPER [None]
